FAERS Safety Report 7217363-4 (Version None)
Quarter: 2011Q1

REPORT INFORMATION
  Report Type: 
  Country: None (occurrence: None)
  Receive Date: 20110110
  Receipt Date: 20101228
  Transmission Date: 20110831
  Serious: Yes (Death, Life-Threatening, Hospitalization)
  Sender: FDA-Public Use
  Company Number: JP-GENZYME-THYM-1002196

PATIENT
  Age: 67 Year
  Sex: Female
  Weight: 44 kg

DRUGS (24)
  1. NICORANDIL [Concomitant]
     Dosage: UNK
     Route: 065
     Dates: start: 20101001, end: 20101107
  2. INSULIN HUMAN [Concomitant]
     Indication: TYPE 2 DIABETES MELLITUS
     Dosage: UNK
     Route: 065
     Dates: start: 20100922, end: 20101209
  3. OMEPRAZOLE [Concomitant]
     Indication: PROPHYLAXIS AGAINST GASTROINTESTINAL ULCER
     Dosage: UNK
     Route: 065
     Dates: start: 20101104, end: 20101209
  4. NICORANDIL [Concomitant]
     Dosage: UNK
     Route: 065
     Dates: start: 20100911, end: 20100930
  5. FILGRASTIM [Concomitant]
     Indication: FEBRILE NEUTROPENIA
  6. POLYMYXIN-B-SULFATE [Concomitant]
     Indication: INFECTION PROPHYLAXIS
     Dosage: UNK
     Route: 065
     Dates: start: 20100917, end: 20101107
  7. BROMHEXINE HYDROCHLORIDE [Concomitant]
     Indication: PROPHYLAXIS
     Dosage: UNK
     Route: 065
     Dates: start: 20101113, end: 20101209
  8. ANTITHROMBIN III HUMAN [Concomitant]
     Indication: DISSEMINATED INTRAVASCULAR COAGULATION
     Dosage: UNK
     Route: 065
     Dates: start: 20100908, end: 20100910
  9. CLOSTRIDIUM BUTYRICUM [Concomitant]
     Indication: PROPHYLAXIS AGAINST DIARRHOEA
     Dosage: UNK
     Route: 065
     Dates: start: 20100917, end: 20101107
  10. LANSOPRAZOLE [Concomitant]
     Indication: PROPHYLAXIS AGAINST GASTROINTESTINAL ULCER
     Dosage: UNK
     Route: 065
     Dates: start: 20100907, end: 20100930
  11. NICORANDIL [Concomitant]
     Indication: POSTINFARCTION ANGINA
     Dosage: UNK
     Route: 065
     Dates: start: 20100907, end: 20100910
  12. METHYLPREDNISOLONE SODIUM SUCCINATE [Concomitant]
     Indication: PREMEDICATION
     Dosage: UNK
     Route: 065
     Dates: start: 20100921, end: 20100925
  13. LANSOPRAZOLE [Concomitant]
     Dosage: UNK
     Route: 065
     Dates: start: 20101029, end: 20101103
  14. FILGRASTIM [Concomitant]
     Indication: APLASTIC ANAEMIA
     Dosage: UNK
     Route: 065
     Dates: start: 20100909, end: 20101017
  15. FEXOFENADINE HCL [Concomitant]
     Indication: PREMEDICATION
     Dosage: UNK
     Route: 065
     Dates: start: 20100921, end: 20100925
  16. PENTAMIDINE ISETHIONATE [Concomitant]
     Indication: ANTIFUNGAL PROPHYLAXIS
     Dosage: UNK
     Route: 065
     Dates: start: 20100918, end: 20101209
  17. THYMOGLOBULIN [Suspect]
     Indication: APLASTIC ANAEMIA
     Dosage: 150 MG, QD
     Route: 042
     Dates: start: 20100921, end: 20100925
  18. ITRACONAZOLE [Concomitant]
     Indication: ANTIFUNGAL PROPHYLAXIS
     Dosage: UNK
     Route: 065
     Dates: start: 20100917, end: 20101104
  19. ACETAMINOPHEN [Concomitant]
     Indication: PREMEDICATION
     Dosage: UNK
     Route: 065
     Dates: start: 20100921, end: 20100925
  20. CYCLOSPORINE [Concomitant]
     Indication: APLASTIC ANAEMIA
     Dosage: UNK
     Route: 065
     Dates: start: 20100917, end: 20101021
  21. MEROPENEM TRIHYDRATE [Concomitant]
     Indication: FEBRILE NEUTROPENIA
     Dosage: UNK
     Route: 065
     Dates: start: 20100907, end: 20100930
  22. PREDNISOLONE [Concomitant]
     Indication: PREMEDICATION
     Dosage: UNK
     Route: 065
     Dates: start: 20100926, end: 20101017
  23. RED BLOOD CELLS, CONCENTRATED [Concomitant]
     Indication: APLASTIC ANAEMIA
     Dosage: UNK
     Route: 065
     Dates: start: 20100907, end: 20101207
  24. PLATELETS [Concomitant]
     Indication: APLASTIC ANAEMIA
     Dosage: UNK
     Route: 065
     Dates: start: 20100907, end: 20101209

REACTIONS (21)
  - DISSEMINATED INTRAVASCULAR COAGULATION [None]
  - FEBRILE NEUTROPENIA [None]
  - HYPOXIC-ISCHAEMIC ENCEPHALOPATHY [None]
  - CYTOMEGALOVIRUS INFECTION [None]
  - NEUTROPHIL COUNT DECREASED [None]
  - BLOOD BILIRUBIN INCREASED [None]
  - DRY MOUTH [None]
  - EPSTEIN-BARR VIRUS TEST POSITIVE [None]
  - HYPOPROTEINAEMIA [None]
  - LYMPHOCYTE COUNT INCREASED [None]
  - CARDIAC FAILURE CONGESTIVE [None]
  - PNEUMONIA FUNGAL [None]
  - BLOOD LACTATE DEHYDROGENASE INCREASED [None]
  - ASPARTATE AMINOTRANSFERASE INCREASED [None]
  - BLOOD CREATININE INCREASED [None]
  - XERODERMA [None]
  - DECUBITUS ULCER [None]
  - CARDIOGENIC SHOCK [None]
  - PULMONARY OEDEMA [None]
  - STAPHYLOCOCCAL INFECTION [None]
  - ALANINE AMINOTRANSFERASE INCREASED [None]
